FAERS Safety Report 25473059 (Version 2)
Quarter: 2025Q3

REPORT INFORMATION
  Report Type: Spontaneous
  Country: CO (occurrence: CO)
  Receive Date: 20250624
  Receipt Date: 20250701
  Transmission Date: 20251020
  Serious: Yes (Other)
  Sender: BAYER HEALTHCARE PHARMACEUTICALS INC.
  Company Number: CO-BAYER-2025A083231

PATIENT
  Age: 23 Year
  Sex: Male
  Weight: 76 kg

DRUGS (1)
  1. ULTRAVIST [Suspect]
     Active Substance: IOPROMIDE
     Indication: Angiogram
     Dates: start: 20250607, end: 20250607

REACTIONS (4)
  - Pruritus [Recovered/Resolved]
  - Skin discomfort [Recovered/Resolved]
  - Rash [Recovered/Resolved]
  - Face oedema [Recovered/Resolved]

NARRATIVE: CASE EVENT DATE: 20250607
